FAERS Safety Report 6297342-4 (Version None)
Quarter: 2009Q3

REPORT INFORMATION
  Report Type: 
  Country: None (occurrence: None)
  Receive Date: 20090805
  Receipt Date: 20090724
  Transmission Date: 20100115
  Serious: Yes (Death, Hospitalization)
  Sender: FDA-Public Use
  Company Number: GB-PFIZER INC-2009245296

PATIENT
  Age: 73 Year

DRUGS (3)
  1. SOMATROPIN [Suspect]
     Dosage: UNK
     Dates: start: 20030910
  2. LEVOTHYROXINE SODIUM [Concomitant]
     Dosage: 100 UG, 1X/DAY
     Dates: start: 20040411
  3. HYDROCORTISONE [Concomitant]
     Dosage: 30 MG, 1X/DAY
     Dates: start: 20050411

REACTIONS (1)
  - DEATH [None]
